FAERS Safety Report 5748802-3 (Version None)
Quarter: 2008Q2

REPORT INFORMATION
  Report Type: 
  Country: None (occurrence: None)
  Receive Date: 20080521
  Receipt Date: 20080509
  Transmission Date: 20081010
  Serious: Yes (Hospitalization)
  Sender: FDA-Public Use
  Company Number: GXKR2008DE04197

PATIENT
  Age: 86 Year
  Sex: Female

DRUGS (1)
  1. TRAMADOL HCL [Suspect]
     Dosage: 20 DF, TID, ORAL
     Route: 048

REACTIONS (3)
  - ACCIDENTAL OVERDOSE [None]
  - DEPRESSED LEVEL OF CONSCIOUSNESS [None]
  - MEDICATION ERROR [None]
